FAERS Safety Report 22643115 (Version 1)
Quarter: 2023Q2

REPORT INFORMATION
  Report Type: Spontaneous
  Country: US (occurrence: US)
  Receive Date: 20230627
  Receipt Date: 20230627
  Transmission Date: 20230721
  Serious: Yes (Hospitalization)
  Sender: FDA-Public Use
  Company Number: US-STRIDES ARCOLAB LIMITED-2023SP008548

PATIENT
  Sex: Male

DRUGS (8)
  1. PROPRANOLOL [Suspect]
     Active Substance: PROPRANOLOL HYDROCHLORIDE
     Indication: Ventricular extrasystoles
     Dosage: UNK
     Route: 065
  2. VERAPAMIL [Suspect]
     Active Substance: VERAPAMIL HYDROCHLORIDE
     Indication: Ventricular extrasystoles
     Dosage: UNK
     Route: 065
  3. VERAPAMIL [Suspect]
     Active Substance: VERAPAMIL HYDROCHLORIDE
     Indication: Ventricular tachycardia
     Dosage: UNK
     Route: 065
     Dates: start: 2022
  4. BISOPROLOL [Suspect]
     Active Substance: BISOPROLOL
     Indication: Ventricular extrasystoles
     Dosage: UNK
     Route: 065
  5. MEXILETINE [Suspect]
     Active Substance: MEXILETINE
     Indication: Ventricular extrasystoles
     Dosage: UNK
     Route: 065
  6. PILSICAINIDE [Suspect]
     Active Substance: PILSICAINIDE
     Indication: Ventricular extrasystoles
     Dosage: UNK
     Route: 065
  7. BEPRIDIL [Suspect]
     Active Substance: BEPRIDIL
     Indication: Ventricular extrasystoles
     Dosage: UNK
     Route: 065
  8. SOTALOL [Suspect]
     Active Substance: SOTALOL
     Indication: Ventricular extrasystoles
     Dosage: UNK
     Route: 065

REACTIONS (2)
  - Treatment failure [Unknown]
  - Off label use [Unknown]
